FAERS Safety Report 15146407 (Version 1)
Quarter: 2018Q3

REPORT INFORMATION
  Report Type: Report from Study
  Country: US (occurrence: US)
  Receive Date: 20180715
  Receipt Date: 20180715
  Transmission Date: 20181010
  Serious: Yes (Other)
  Sender: FDA-Public Use
  Company Number: US-SHIRE-US201825376

PATIENT
  Sex: Female

DRUGS (1)
  1. HUMAN IMMUNOGLOBULIN; HYALURONIDASE [Suspect]
     Active Substance: HUMAN IMMUNOGLOBULIN G\HYALURONIDASE RECOMBINANT HUMAN
     Indication: PRIMARY IMMUNODEFICIENCY SYNDROME
     Dosage: UNK
     Route: 058

REACTIONS (6)
  - Infusion site extravasation [Unknown]
  - Underdose [Unknown]
  - Upper respiratory tract infection [Recovering/Resolving]
  - Blood pressure increased [Unknown]
  - Peripheral swelling [Unknown]
  - Streptococcal infection [Unknown]
